FAERS Safety Report 7529308-8 (Version None)
Quarter: 2011Q2

REPORT INFORMATION
  Report Type: 
  Country: None (occurrence: None)
  Receive Date: 20110607
  Receipt Date: 20050810
  Transmission Date: 20111010
  Serious: Yes (Death, Other)
  Sender: FDA-Public Use
  Company Number: PHHO2005HN11578

PATIENT
  Age: 76 Year
  Sex: Male

DRUGS (2)
  1. EXELON [Suspect]
     Indication: DEMENTIA ALZHEIMER'S TYPE
     Dosage: 1.5 MG, QD
     Route: 048
  2. SEROQUEL [Concomitant]

REACTIONS (5)
  - PHARYNGITIS [None]
  - PYREXIA [None]
  - DYSPNOEA [None]
  - DEATH [None]
  - COUGH [None]
